FAERS Safety Report 7272281-0 (Version None)
Quarter: 2011Q1

REPORT INFORMATION
  Report Type: 
  Country: None (occurrence: None)
  Receive Date: 20110203
  Receipt Date: 20110126
  Transmission Date: 20110831
  Serious: Yes (Hospitalization)
  Sender: FDA-Public Use
  Company Number: PHEH2010US00789

PATIENT
  Sex: Female

DRUGS (2)
  1. EXJADE [Suspect]
     Indication: IRON OVERLOAD
     Dosage: 2000 MG, QD
     Route: 048
  2. EXJADE [Suspect]
     Indication: SICKLE CELL ANAEMIA

REACTIONS (2)
  - DRUG EXPOSURE DURING PREGNANCY [None]
  - PAIN [None]
